FAERS Safety Report 13015032 (Version 3)
Quarter: 2017Q1

REPORT INFORMATION
  Report Type: Report from Study
  Country: JP (occurrence: JP)
  Receive Date: 20161210
  Receipt Date: 20170130
  Transmission Date: 20170428
  Serious: Yes (Hospitalization)
  Sender: FDA-Public Use
  Company Number: JP-AMGEN-JPNCT2016175051

PATIENT
  Age: 65 Year
  Sex: Male
  Weight: 76 kg

DRUGS (14)
  1. DARBEPOETIN ALFA [Suspect]
     Active Substance: DARBEPOETIN ALFA
     Dosage: 120 MUG, Q4WK
     Route: 058
     Dates: start: 20160219
  2. KALIMATE [Concomitant]
     Active Substance: CALCIUM POLYSTYRENE SULFONATE
     Indication: HYPERKALAEMIA
     Dosage: 25 G, TID
     Route: 048
     Dates: start: 20150303
  3. FEBURIC [Concomitant]
     Active Substance: FEBUXOSTAT
     Indication: HYPERURICAEMIA
     Dosage: 20 MG, QD
     Route: 048
     Dates: start: 20150303
  4. NOVORAPID [Concomitant]
     Active Substance: INSULIN ASPART
     Indication: DIABETES MELLITUS
     Dosage: 3 IU, QD
     Route: 058
     Dates: start: 20161128
  5. AMLODIPINE [Concomitant]
     Active Substance: AMLODIPINE BESYLATE
     Indication: HYPERTENSION
     Dosage: 10 MG, QD
     Route: 048
     Dates: start: 20150424
  6. D-SORBITOL [Concomitant]
     Indication: CONSTIPATION PROPHYLAXIS
     Dosage: 15 G, TID
     Route: 048
     Dates: start: 20150525
  7. OLMETEC [Concomitant]
     Active Substance: OLMESARTAN MEDOXOMIL
     Indication: HYPERTENSION
     Dosage: 40 MG, QD
     Route: 048
     Dates: start: 20150303
  8. DARBEPOETIN ALFA [Suspect]
     Active Substance: DARBEPOETIN ALFA
     Indication: CHRONIC KIDNEY DISEASE
     Dosage: 30 MUG, QD
     Route: 058
     Dates: start: 20150731
  9. DARBEPOETIN ALFA [Suspect]
     Active Substance: DARBEPOETIN ALFA
     Dosage: 30 MUG, QD
     Route: 058
     Dates: start: 20150904
  10. LASIX [Concomitant]
     Active Substance: FUROSEMIDE
     Indication: HYPERTENSION
     Dosage: 20 G, QD
     Route: 048
     Dates: start: 20160415
  11. DARBEPOETIN ALFA [Suspect]
     Active Substance: DARBEPOETIN ALFA
     Dosage: 60 MUG, Q4WK
     Route: 058
     Dates: start: 20151002
  12. CARDENALIN [Concomitant]
     Active Substance: DOXAZOSIN MESYLATE
     Indication: HYPERTENSION
     Dosage: 2 MG, QD
     Route: 048
     Dates: start: 20150303
  13. LEVEMIR [Concomitant]
     Active Substance: INSULIN DETEMIR
     Indication: CHRONIC KIDNEY DISEASE
     Dosage: 4 IU, QD
     Route: 058
     Dates: start: 20150327
  14. KREMEZIN [Concomitant]
     Active Substance: ACTIVATED CHARCOAL
     Indication: CHRONIC KIDNEY DISEASE
     Dosage: 2 G, TID
     Route: 048
     Dates: start: 20151030

REACTIONS (5)
  - Xeroderma [Recovering/Resolving]
  - Foot fracture [Recovered/Resolved]
  - Oedema peripheral [Recovering/Resolving]
  - Large intestine polyp [Recovered/Resolved]
  - Xeroderma [Unknown]

NARRATIVE: CASE EVENT DATE: 20160401
